FAERS Safety Report 6407406-X (Version None)
Quarter: 2009Q4

REPORT INFORMATION
  Report Type: 
  Country: None (occurrence: None)
  Receive Date: 20091020
  Receipt Date: 20091015
  Transmission Date: 20100525
  Serious: Yes (Other)
  Sender: FDA-Public Use
  Company Number: GB-B.I. PHARMACEUTICALS,INC./RIDGEFIELD-2009-UK-00911UK

PATIENT
  Age: 59 Year
  Sex: Male

DRUGS (9)
  1. MICARDIS HCT [Suspect]
     Indication: HYPERTENSION
     Dosage: 40/12.5 MG
     Route: 048
     Dates: start: 20081229
  2. MICARDIS HCT [Suspect]
     Dosage: 80/12.5MG
     Route: 048
     Dates: end: 20090904
  3. BIMATOPROST [Concomitant]
     Indication: GASTROOESOPHAGEAL REFLUX DISEASE
     Route: 031
     Dates: start: 20080512
  4. BRINZOLAMIDE [Concomitant]
     Indication: GLAUCOMA
     Route: 031
     Dates: start: 20080512
  5. COMBIGAN [Concomitant]
     Indication: GLAUCOMA
     Route: 031
     Dates: start: 20080512
  6. GAVISCON [Concomitant]
     Indication: GASTROOESOPHAGEAL REFLUX DISEASE
     Route: 048
     Dates: start: 20050822
  7. MICARDIS HCT [Concomitant]
     Route: 048
  8. OMEPRAZOLE [Concomitant]
     Indication: GASTROOESOPHAGEAL REFLUX DISEASE
     Route: 048
     Dates: start: 20080811
  9. SIMVASTATIN [Concomitant]
     Indication: LIPIDS INCREASED
     Route: 048
     Dates: start: 20030613

REACTIONS (1)
  - SLEEP APNOEA SYNDROME [None]
